FAERS Safety Report 8525298-X (Version None)
Quarter: 2012Q3

REPORT INFORMATION
  Report Type: 
  Country: None (occurrence: None)
  Receive Date: 20120720
  Receipt Date: 20120718
  Transmission Date: 20120928
  Serious: Yes (Other)
  Sender: FDA-Public Use
  Company Number: PHHY2012AU058610

PATIENT
  Sex: Female

DRUGS (11)
  1. ZOLEDRONOC ACID [Suspect]
     Dosage: 5 MG, YEARLY
     Route: 042
     Dates: start: 20100615
  2. VITAMIN D [Concomitant]
  3. FLUTICASONE PROPIONATE/SALMETEROL [Concomitant]
  4. LUCENTIS [Concomitant]
  5. ZOLEDRONOC ACID [Suspect]
     Dosage: 5 MG, YEARLY
     Route: 042
     Dates: start: 20090514
  6. ZOLEDRONOC ACID [Suspect]
     Dosage: 5 MG, YEARLY
     Route: 042
     Dates: start: 20110615
  7. LYRICA [Concomitant]
  8. OSTEOVIT D [Concomitant]
  9. LEVOTHYROXINE SODIUM [Concomitant]
  10. KARREA [Concomitant]
  11. SIMVASTATIN [Concomitant]

REACTIONS (4)
  - PAIN IN EXTREMITY [None]
  - FALL [None]
  - JOINT INJURY [None]
  - LIGAMENT SPRAIN [None]
